FAERS Safety Report 11320019 (Version 2)
Quarter: 2015Q3

REPORT INFORMATION
  Report Type: Spontaneous
  Country: US (occurrence: US)
  Receive Date: 20150729
  Receipt Date: 20150804
  Transmission Date: 20151125
  Serious: Yes (Other)
  Sender: FDA-Public Use
  Company Number: US-PFIZER INC-2015251610

PATIENT
  Age: 64 Year
  Sex: Female
  Weight: 70 kg

DRUGS (11)
  1. VITAMIN B12 [Concomitant]
     Active Substance: CYANOCOBALAMIN
     Indication: VITAMIN B12 DEFICIENCY
  2. LISINOPRIL. [Concomitant]
     Active Substance: LISINOPRIL
     Indication: HYPERTENSION
     Dosage: 20MG ONE TABLET ONCE A DAY
     Route: 048
  3. VITAMIN B12 [Concomitant]
     Active Substance: CYANOCOBALAMIN
     Indication: ASTHENIA
     Dosage: 1000MCG DISSOLVABLE ONE TABLET UNDER THE TONGUE ONCE A DAY
     Route: 060
  4. VENLAFAXINE [Concomitant]
     Active Substance: VENLAFAXINE HYDROCHLORIDE
     Indication: DEPRESSION
     Dosage: 150MG TWO TABLETS AT BEDTIME
     Route: 048
  5. CLONAZEPAM. [Concomitant]
     Active Substance: CLONAZEPAM
     Indication: ANXIETY
     Dosage: 1MG ONE TABLET TWICE A DAY
     Route: 048
  6. ATORVASTATIN [Concomitant]
     Active Substance: ATORVASTATIN
     Indication: BLOOD CHOLESTEROL INCREASED
     Dosage: 20MG ONE TABLET ONCE A DAY
     Route: 048
  7. CHANTIX [Suspect]
     Active Substance: VARENICLINE TARTRATE
     Indication: SMOKING CESSATION THERAPY
     Dosage: 1 MG, 2X/DAY
     Route: 048
     Dates: start: 201505, end: 20150526
  8. TRAZODONE [Concomitant]
     Active Substance: TRAZODONE HYDROCHLORIDE
     Indication: DEPRESSION
     Dosage: 50MG ONE TABLET AT BEDTIME
     Route: 048
  9. DICLOFENAC [Concomitant]
     Active Substance: DICLOFENAC
     Indication: PAIN
     Dosage: 75MG ONE TO TWO TABLETS A DAY
     Route: 048
  10. MIRTAZAPINE. [Concomitant]
     Active Substance: MIRTAZAPINE
     Indication: SLEEP DISORDER
     Dosage: 15MG ONE TABLET AT BEDTIME
     Route: 048
  11. ASPIRIN. [Concomitant]
     Active Substance: ASPIRIN
     Indication: BLOOD DISORDER
     Dosage: 81MG ONE TABLET ONCE A DAY
     Route: 048

REACTIONS (6)
  - Fall [Recovered/Resolved]
  - Stress [Unknown]
  - Balance disorder [Recovered/Resolved]
  - Partial seizures [Unknown]
  - Tremor [Recovering/Resolving]
  - Impaired driving ability [Unknown]

NARRATIVE: CASE EVENT DATE: 201505
